FAERS Safety Report 6520400-3 (Version None)
Quarter: 2009Q4

REPORT INFORMATION
  Report Type: 
  Country: None (occurrence: None)
  Receive Date: 20091229
  Receipt Date: 20091203
  Transmission Date: 20100525
  Serious: Yes (Hospitalization, Other)
  Sender: FDA-Public Use
  Company Number: US-ROCHE-669496

PATIENT
  Sex: Female
  Weight: 65.5 kg

DRUGS (8)
  1. BEVACIZUMAB [Suspect]
     Dosage: UNK
     Route: 042
     Dates: start: 20091008, end: 20091009
  2. RAMIPRIL [Concomitant]
     Indication: DRUG USE FOR UNKNOWN INDICATION
  3. CALTRATE + D [Concomitant]
  4. URECHOLINE [Concomitant]
     Indication: DRUG USE FOR UNKNOWN INDICATION
  5. CIPRO [Concomitant]
     Indication: DRUG USE FOR UNKNOWN INDICATION
  6. BIAXIN [Concomitant]
     Indication: DRUG USE FOR UNKNOWN INDICATION
  7. ZOMETA [Concomitant]
     Indication: DRUG USE FOR UNKNOWN INDICATION
  8. TAXOL [Concomitant]
     Indication: DRUG USE FOR UNKNOWN INDICATION

REACTIONS (1)
  - PERIVASCULAR DERMATITIS [None]
